FAERS Safety Report 16455709 (Version 2)
Quarter: 2019Q3

REPORT INFORMATION
  Report Type: Spontaneous
  Country: HR (occurrence: HR)
  Receive Date: 20190620
  Receipt Date: 20190708
  Transmission Date: 20191004
  Serious: Yes (Other)
  Sender: FDA-Public Use
  Company Number: HR-INCYTE CORPORATION-2019IN006098

PATIENT

DRUGS (6)
  1. JAKAVI [Suspect]
     Active Substance: RUXOLITINIB
     Indication: MYELOFIBROSIS
     Dosage: 20 MG, BID
     Route: 048
     Dates: start: 20181126
  2. PIRAMIL [Concomitant]
     Active Substance: RAMIPRIL
     Indication: HYPERTENSION
     Dosage: 10 MG, BID
     Route: 048
  3. ZOLOFT [Concomitant]
     Active Substance: SERTRALINE HYDROCHLORIDE
     Indication: DEPRESSION
     Dosage: 50 MG, UNK
     Route: 048
  4. FURSEMID [Concomitant]
     Active Substance: FUROSEMIDE
     Indication: HYPERTENSION
     Dosage: 40 MG, UNK
     Route: 048
  5. LERCANIL [Concomitant]
     Active Substance: LERCANIDIPINE HYDROCHLORIDE
     Indication: HYPERTENSION
     Dosage: 10 MG, BID
     Route: 048
  6. ACIPAN [Concomitant]
     Active Substance: PANTOPRAZOLE SODIUM
     Indication: GASTRITIS
     Dosage: 40 MG, UNK
     Route: 048

REACTIONS (7)
  - Ascites [Recovering/Resolving]
  - Lymphadenopathy [Recovering/Resolving]
  - C-reactive protein increased [Recovering/Resolving]
  - Anaemia [Recovered/Resolved]
  - Lymphadenopathy mediastinal [Unknown]
  - Pleural effusion [Recovering/Resolving]
  - Hilar lymphadenopathy [Unknown]

NARRATIVE: CASE EVENT DATE: 20190515
